FAERS Safety Report 6613327-X (Version None)
Quarter: 2010Q1

REPORT INFORMATION
  Report Type: 
  Country: None (occurrence: None)
  Receive Date: 20100304
  Receipt Date: 20100224
  Transmission Date: 20100710
  Serious: Yes (Hospitalization, Other)
  Sender: FDA-Public Use
  Company Number: PHHO2010US02762

PATIENT
  Sex: Male
  Weight: 77.1 kg

DRUGS (11)
  1. CGP 57148B T35717+ [Suspect]
     Indication: GRAFT VERSUS HOST DISEASE
     Dosage: 200 MG, QD
     Route: 048
     Dates: start: 20090619
  2. IMMU-G [Suspect]
     Dosage: UNK
  3. MOXIFLOXACIN HCL [Suspect]
  4. CORTICOSTEROIDS [Suspect]
  5. SIROLIMUS [Concomitant]
     Indication: GRAFT VERSUS HOST DISEASE
  6. GEMFIBROZIL [Concomitant]
     Indication: DYSLIPIDAEMIA
  7. PRAVASTATIN [Concomitant]
     Indication: DYSLIPIDAEMIA
  8. TAMSULOSIN HCL [Concomitant]
     Indication: BENIGN PROSTATIC HYPERPLASIA
  9. PREDNISONE [Concomitant]
     Indication: GRAFT VERSUS HOST DISEASE
  10. GLIPIZIDE [Concomitant]
     Indication: DIABETES MELLITUS
  11. CELEXA [Concomitant]
     Indication: DEPRESSION

REACTIONS (12)
  - BACTERIAL INFECTION [None]
  - DIABETES MELLITUS [None]
  - FLUID OVERLOAD [None]
  - HYPERGLYCAEMIA [None]
  - LUNG INFILTRATION [None]
  - PNEUMONIA [None]
  - POSTNASAL DRIP [None]
  - PRODUCTIVE COUGH [None]
  - PYREXIA [None]
  - RHONCHI [None]
  - SPUTUM DISCOLOURED [None]
  - VIRAL INFECTION [None]
